FAERS Safety Report 18087244 (Version 4)
Quarter: 2023Q2

REPORT INFORMATION
  Report Type: Spontaneous
  Country: US (occurrence: US)
  Receive Date: 20200729
  Receipt Date: 20230418
  Transmission Date: 20230722
  Serious: Yes (Death, Other)
  Sender: FDA-Public Use
  Company Number: US-PFIZER INC-2020286474

PATIENT
  Age: 71 Year
  Sex: Female
  Weight: 45.351 kg

DRUGS (1)
  1. XELJANZ [Suspect]
     Active Substance: TOFACITINIB CITRATE
     Dosage: 5 MG
     Route: 048

REACTIONS (3)
  - Death [Fatal]
  - Parkinson^s disease [Unknown]
  - Oral fungal infection [Unknown]
